FAERS Safety Report 6398901-0 (Version None)
Quarter: 2009Q4

REPORT INFORMATION
  Report Type: 
  Country: None (occurrence: None)
  Receive Date: 20091013
  Receipt Date: 20091001
  Transmission Date: 20100525
  Serious: Yes (Other)
  Sender: FDA-Public Use
  Company Number: PHBS2005BR12056

PATIENT
  Sex: Female
  Weight: 96.5 kg

DRUGS (8)
  1. DIOVAN [Suspect]
     Indication: HYPERTENSION
     Dosage: 80 MG, QD
     Route: 048
     Dates: start: 20050301
  2. DIOVAN [Suspect]
     Dosage: HALF 160 MG TABLET, QD
     Route: 048
     Dates: start: 20050816, end: 20070101
  3. NEOVLAR [Suspect]
     Indication: HAEMORRHAGE
  4. CAPTOPRIL [Concomitant]
     Indication: HYPERTENSION
     Dosage: UNK, PRN
     Route: 048
  5. OMEPRAZOLE [Concomitant]
     Indication: GASTRITIS
     Dosage: 1 DF, QD
     Route: 048
  6. HYDROCHLOROTHIAZIDE [Concomitant]
     Indication: HYPERTENSION
     Dosage: UNK, PRN
     Route: 048
  7. RIVOTRIL [Concomitant]
     Indication: ANXIETY
     Dosage: HALF A 2 MG TABLET, PRN
     Route: 048
  8. POLARAMINE [Concomitant]

REACTIONS (15)
  - ASTHENIA [None]
  - BLOOD PRESSURE INADEQUATELY CONTROLLED [None]
  - DIZZINESS [None]
  - DRUG INEFFECTIVE [None]
  - DYSPEPSIA [None]
  - DYSPNOEA [None]
  - ENDOMETRIAL HYPERTROPHY [None]
  - HAEMORRHAGE [None]
  - HORMONE LEVEL ABNORMAL [None]
  - HYPERTENSION [None]
  - HYPOAESTHESIA [None]
  - HYPOTENSION [None]
  - PARAESTHESIA [None]
  - REBOUND EFFECT [None]
  - SENSORY LOSS [None]
